FAERS Safety Report 7901506-0 (Version None)
Quarter: 2011Q4

REPORT INFORMATION
  Report Type: 
  Country: None (occurrence: None)
  Receive Date: 20111108
  Receipt Date: 20111019
  Transmission Date: 20120403
  Serious: Yes (Hospitalization)
  Sender: FDA-Public Use
  Company Number: US-ROCHE-1005620

PATIENT
  Age: 52 Year
  Sex: Female
  Weight: 100 kg

DRUGS (3)
  1. PACLITAXEL [Suspect]
     Indication: CERVIX CARCINOMA
     Route: 042
     Dates: start: 20110620
  2. AVASTIN [Suspect]
     Indication: CERVIX CARCINOMA
     Route: 042
     Dates: start: 20110620
  3. TOPOTECAN HYDROCHLORIDE [Suspect]
     Indication: CERVIX CARCINOMA
     Route: 042
     Dates: start: 20110620

REACTIONS (6)
  - ANAL FISTULA [None]
  - PROCTALGIA [None]
  - RECTAL HAEMORRHAGE [None]
  - PROCTITIS [None]
  - URINARY TRACT OBSTRUCTION [None]
  - PELVIC PAIN [None]
